FAERS Safety Report 6964473-2 (Version None)
Quarter: 2010Q3

REPORT INFORMATION
  Report Type: 
  Country: None (occurrence: None)
  Receive Date: 20100903
  Receipt Date: 20100824
  Transmission Date: 20110219
  Serious: Yes (Disabling)
  Sender: FDA-Public Use
  Company Number: CA-PFIZER INC-2010074043

PATIENT
  Age: 57 Year
  Sex: Female
  Weight: 75 kg

DRUGS (8)
  1. EXEMESTANE [Suspect]
     Indication: BREAST CANCER
     Dosage: 25 MG, 1X/DAY
     Dates: start: 20050629, end: 20090709
  2. CESAMET [Concomitant]
     Dosage: UNK
     Dates: start: 20050101
  3. NEURONTIN [Concomitant]
     Indication: HOT FLUSH
     Dosage: UNK
     Dates: start: 20050616
  4. LASIX [Concomitant]
     Dosage: UNK
     Dates: start: 20090513, end: 20090701
  5. PERCOCET [Concomitant]
     Dosage: UNK
     Dates: start: 20060601
  6. VITAMIN B [Concomitant]
     Dosage: UNK
     Dates: start: 20050615
  7. CALCIUM WITH VITAMIN D [Concomitant]
     Indication: SUPPLEMENTATION THERAPY
     Dosage: UNK
     Dates: start: 20040101
  8. ZOPICLONE [Concomitant]
     Indication: INSOMNIA
     Dosage: UNK
     Dates: start: 20050101

REACTIONS (1)
  - RENAL FAILURE [None]
